FAERS Safety Report 21777037 (Version 1)
Quarter: 2022Q4

REPORT INFORMATION
  Report Type: Spontaneous
  Country: US (occurrence: US)
  Receive Date: 20221226
  Receipt Date: 20221226
  Transmission Date: 20230113
  Serious: No
  Sender: FDA-Public Use
  Company Number: US-MIGRATION_PFIZER-2022BHV002337

PATIENT
  Age: 65 Year
  Sex: Female
  Weight: 56.296 kg

DRUGS (2)
  1. NURTEC ODT [Suspect]
     Active Substance: RIMEGEPANT SULFATE
     Indication: Prophylaxis
     Route: 048
  2. NURTEC ODT [Suspect]
     Active Substance: RIMEGEPANT SULFATE
     Indication: Headache

REACTIONS (5)
  - Reflux gastritis [Recovered/Resolved]
  - Tinnitus [Unknown]
  - Anxiety [Recovered/Resolved]
  - Insomnia [Unknown]
  - Drug ineffective [Recovered/Resolved]
